FAERS Safety Report 12294166 (Version 2)
Quarter: 2016Q2

REPORT INFORMATION
  Report Type: Spontaneous
  Country: HU (occurrence: HU)
  Receive Date: 20160422
  Receipt Date: 20160505
  Transmission Date: 20160815
  Serious: Yes (Hospitalization)
  Sender: FDA-Public Use
  Company Number: HU-AMGEN-HUNSP2016050111

PATIENT
  Age: 53 Year
  Sex: Female
  Weight: 76 kg

DRUGS (12)
  1. HUMA-FOLACID [Concomitant]
     Indication: RHEUMATOID ARTHRITIS
     Dosage: 5 MG, WEEKLY 1X2 (SATURDAY), STARTED 7 YEARS AGO
     Dates: start: 2009
  2. ATORVOX [Concomitant]
     Active Substance: ATORVASTATIN
     Indication: CARDIAC DISORDER
     Dosage: 40 MG, 1 IN THE EVENING, STARTED 1 MONTHS AGO
     Dates: start: 201603
  3. NITRODERM [Concomitant]
     Active Substance: NITROGLYCERIN
     Indication: CARDIAC DISORDER
     Dosage: 5 MG/24H, 1 PATCH IN THE MORNING, STARTED 1 MONTHS AGO
  4. VALSARTAN HCT SANDOZ [Concomitant]
     Active Substance: HYDROCHLOROTHIAZIDE\VALSARTAN
     Indication: CARDIAC DISORDER
     Dosage: 160 MG/12.5 MG, 1 IN THE MORNING, STARTED 1 MONTHS AGO
     Dates: start: 201603
  5. NOLPAZA [Concomitant]
     Active Substance: PANTOPRAZOLE SODIUM
     Indication: PROPHYLAXIS
     Dosage: 40 MG, 1 IN THE EVENING, STARTED 1 MONTH AGO
     Dates: start: 201603
  6. DOXIUM [Concomitant]
     Indication: PERIPHERAL SWELLING
     Dosage: 500 MG, 2X1, STARTED 1 MONTH AGO
     Dates: start: 201603
  7. TREXAN                             /00113801/ [Concomitant]
     Active Substance: METHOTREXATE SODIUM
     Indication: RHEUMATOID ARTHRITIS
     Dosage: 10 MG, WEEKLY 1X1 (FRIDAY) STARTED 7 YEARS AGO
     Dates: start: 2009
  8. ENBREL [Suspect]
     Active Substance: ETANERCEPT
     Indication: RHEUMATOID ARTHRITIS
     Dosage: 50 MG, WEEKLY 1X1
     Route: 065
     Dates: start: 201601
  9. CONCOR [Concomitant]
     Active Substance: BISOPROLOL FUMARATE
     Indication: CARDIAC DISORDER
     Dosage: 5 MG, 2X1/2, STARTED 1 MONTHS AGO
     Dates: start: 201603
  10. ASPIRIN PROTECT [Concomitant]
     Active Substance: ASPIRIN
     Indication: CARDIAC DISORDER
     Dosage: 100 MG, 1 IN THE MORNING, STARTED 1 MONTH AGO
  11. NORMODIPINE [Concomitant]
     Active Substance: AMLODIPINE BESYLATE
     Indication: CARDIAC DISORDER
     Dosage: 5 MG, 1 IN THE EVENING, STARTED 1 MONTHS AGO
     Dates: start: 201603
  12. TREXAN                             /00113801/ [Concomitant]
     Active Substance: METHOTREXATE SODIUM
     Indication: RHEUMATOID ARTHRITIS
     Dosage: 10 MG, WEEKLY 1X1 (FRIDAY) STARTED 7 YEARS AGO
     Dates: start: 2009

REACTIONS (4)
  - Coronary artery stenosis [Unknown]
  - Fatigue [Recovered/Resolved]
  - Asthenia [Recovered/Resolved]
  - Tremor [Recovered/Resolved]

NARRATIVE: CASE EVENT DATE: 201603
